FAERS Safety Report 23526086 (Version 2)
Quarter: 2024Q1

REPORT INFORMATION
  Report Type: Spontaneous
  Country: US (occurrence: US)
  Receive Date: 20240215
  Receipt Date: 20240307
  Transmission Date: 20240410
  Serious: No
  Sender: FDA-Public Use
  Company Number: US-Blueprint Medicines Corporation-2357

PATIENT
  Sex: Female
  Weight: 104 kg

DRUGS (1)
  1. AYVAKIT [Suspect]
     Active Substance: AVAPRITINIB
     Indication: Systemic mastocytosis
     Route: 065
     Dates: start: 20231001

REACTIONS (4)
  - Nausea [Unknown]
  - COVID-19 [Recovered/Resolved]
  - Brain fog [Unknown]
  - Product dose omission issue [Unknown]
